FAERS Safety Report 8374605-X (Version None)
Quarter: 2012Q2

REPORT INFORMATION
  Report Type: 
  Country: None (occurrence: None)
  Receive Date: 20120521
  Receipt Date: 20120511
  Transmission Date: 20120825
  Serious: Yes (Life-Threatening, Hospitalization)
  Sender: FDA-Public Use
  Company Number: GB-FRI-1000030634

PATIENT
  Age: 23 Year
  Sex: Male

DRUGS (3)
  1. AMOXICILLIN [Suspect]
     Indication: PERICORONITIS
     Dosage: 600 MG
  2. CITALOPRAM HYDROBROMIDE [Suspect]
     Dosage: 40 MG
  3. METRONIDAZOLE [Suspect]
     Indication: PERICORONITIS
     Dosage: 750 MG

REACTIONS (1)
  - ANAPHYLACTIC SHOCK [None]
